FAERS Safety Report 7470654-4 (Version None)
Quarter: 2011Q2

REPORT INFORMATION
  Report Type: 
  Country: None (occurrence: None)
  Receive Date: 20110506
  Receipt Date: 20110506
  Transmission Date: 20111010
  Serious: Yes (Hospitalization)
  Sender: FDA-Public Use
  Company Number: None

PATIENT
  Sex: Male
  Weight: 69.8539 kg

DRUGS (7)
  1. MAGNESIUM CITRATE [Concomitant]
  2. SENOKOT [Concomitant]
  3. OXYCODONE HCL [Suspect]
     Indication: PAIN
     Dosage: 5 MG PO Q6H AS NEEDED
     Route: 048
     Dates: start: 20110303
  4. CRIZOTINIB [Suspect]
     Indication: LUNG NEOPLASM MALIGNANT
     Dosage: 250 MG PO TWICE DAILY
     Route: 048
     Dates: start: 20110414, end: 20110504
  5. RESTORIL [Concomitant]
  6. MAGNESIUM HYDROXIDE [Concomitant]
  7. MESALAMINE SR [Concomitant]

REACTIONS (4)
  - COLONIC OBSTRUCTION [None]
  - VOMITING [None]
  - ILEUS PARALYTIC [None]
  - ABDOMINAL PAIN [None]
